FAERS Safety Report 23094320 (Version 1)
Quarter: 2023Q4

REPORT INFORMATION
  Report Type: Spontaneous
  Country: DE (occurrence: DE)
  Receive Date: 20231023
  Receipt Date: 20231023
  Transmission Date: 20240110
  Serious: Yes (Death, Other)
  Sender: FDA-Public Use
  Company Number: DE-IPSEN Group, Research and Development-2023-24172

PATIENT
  Age: 83 Year
  Sex: Female

DRUGS (1)
  1. LANREOTIDE ACETATE [Suspect]
     Active Substance: LANREOTIDE ACETATE
     Indication: Product used for unknown indication
     Route: 065
     Dates: start: 2015, end: 202309

REACTIONS (3)
  - Death [Fatal]
  - Cholelithiasis [Unknown]
  - Procedural pain [Unknown]

NARRATIVE: CASE EVENT DATE: 20230501
